FAERS Safety Report 12626050 (Version 2)
Quarter: 2016Q3

REPORT INFORMATION
  Report Type: Spontaneous
  Country: FR (occurrence: FR)
  Receive Date: 20160805
  Receipt Date: 20160811
  Transmission Date: 20161109
  Serious: Yes (Life-Threatening, Hospitalization)
  Sender: FDA-Public Use
  Company Number: FR-ASTRAZENECA-2016SE82272

PATIENT
  Age: 15379 Day
  Sex: Female

DRUGS (8)
  1. STRIVERDI RESPIMAT [Suspect]
     Active Substance: OLODATEROL HYDROCHLORIDE
     Indication: CHRONIC OBSTRUCTIVE PULMONARY DISEASE
     Route: 055
  2. NOVATREX NOS [Suspect]
     Active Substance: AZITHROMYCIN OR METHOTREXATE SODIUM
     Indication: RHEUMATOID ARTHRITIS
     Route: 048
  3. PREDNISONE. [Suspect]
     Active Substance: PREDNISONE
     Indication: RHEUMATOID ARTHRITIS
     Route: 048
  4. ALPRAZOLAM. [Suspect]
     Active Substance: ALPRAZOLAM
     Indication: ANXIETY
     Route: 048
  5. INEXIUM [Suspect]
     Active Substance: ESOMEPRAZOLE
     Route: 048
  6. SPIRIVA RESPIMAT [Suspect]
     Active Substance: TIOTROPIUM BROMIDE
     Indication: CHRONIC OBSTRUCTIVE PULMONARY DISEASE
     Route: 055
  7. HUMIRA [Suspect]
     Active Substance: ADALIMUMAB
     Indication: RHEUMATOID ARTHRITIS
     Route: 058
     Dates: start: 201604, end: 20160617
  8. OXYCODONE [Suspect]
     Active Substance: OXYCODONE
     Indication: PAIN
     Route: 048

REACTIONS (5)
  - Renal infarct [Recovered/Resolved with Sequelae]
  - Splenic infarction [Recovered/Resolved with Sequelae]
  - Aortic thrombosis [Recovered/Resolved]
  - Hepatic infarction [Recovered/Resolved with Sequelae]
  - Breast oedema [Unknown]

NARRATIVE: CASE EVENT DATE: 20160617
